FAERS Safety Report 10475930 (Version 2)
Quarter: 2014Q3

REPORT INFORMATION
  Report Type: Report from Study
  Country: MX (occurrence: MX)
  Receive Date: 20140925
  Receipt Date: 20140925
  Transmission Date: 20150326
  Serious: Yes (Other)
  Sender: FDA-Public Use
  Company Number: PHHY2014MX115853

PATIENT
  Age: 67 Year
  Sex: Male

DRUGS (2)
  1. TRILEPTAL [Suspect]
     Active Substance: OXCARBAZEPINE
     Dosage: 1 DF, BID
     Route: 048
  2. AVANDIA [Concomitant]
     Active Substance: ROSIGLITAZONE MALEATE
     Dosage: 1 UNK, BID
     Dates: start: 2006

REACTIONS (2)
  - Hypoaesthesia [Recovered/Resolved]
  - Microembolism [Recovered/Resolved]

NARRATIVE: CASE EVENT DATE: 20120915
